FAERS Safety Report 5497984-X (Version None)
Quarter: 2007Q4

REPORT INFORMATION
  Report Type: 
  Country: None (occurrence: None)
  Receive Date: 20071018
  Receipt Date: 20060906
  Transmission Date: 20080405
  Serious: Yes (Other)
  Sender: FDA-Public Use
  Company Number: 2006108777

PATIENT
  Age: 69 Year
  Sex: Male
  Weight: 78.9259 kg

DRUGS (4)
  1. NEURONTIN [Suspect]
     Indication: HEADACHE
     Dates: start: 20060201, end: 20060831
  2. NARDIL [Suspect]
     Indication: HEADACHE
     Dosage: 60 MG (15 MG, 4 IN 1 D) ,
     Dates: start: 20060501
  3. KLONOPIN [Suspect]
     Indication: MENIERE'S DISEASE
     Dates: start: 19860101
  4. SYNTHROID [Concomitant]

REACTIONS (4)
  - CONVULSION [None]
  - DIZZINESS [None]
  - DYSKINESIA [None]
  - HEADACHE [None]
